FAERS Safety Report 4829518-4 (Version None)
Quarter: 2005Q4

REPORT INFORMATION
  Report Type: 
  Country: None (occurrence: None)
  Receive Date: 20051116
  Receipt Date: 20051107
  Transmission Date: 20060501
  Serious: Yes (Hospitalization)
  Sender: FDA-Public Use
  Company Number: US-SANOFI-SYNTHELABO-A03200503587

PATIENT
  Age: 61 Year
  Sex: Female
  Weight: 83.9 kg

DRUGS (5)
  1. PLAVIX [Suspect]
     Indication: MYOCARDIAL INFARCTION
     Dosage: 600 MG LOADING DOSE FOLLOWED BY 75 MG QD THEREAFTER
     Route: 048
  2. ATENOLOL [Concomitant]
     Dosage: UNK
     Route: 065
  3. MUCINEX [Concomitant]
     Dosage: UNK
     Route: 065
  4. BENADRYL [Concomitant]
     Dosage: UNK
     Route: 065
  5. PREVACID [Concomitant]
     Dosage: UNK
     Route: 065

REACTIONS (2)
  - DYSPNOEA [None]
  - LARYNGEAL OEDEMA [None]
